FAERS Safety Report 13247382 (Version 1)
Quarter: 2017Q1

REPORT INFORMATION
  Report Type: Spontaneous
  Country: DE (occurrence: DE)
  Receive Date: 20170217
  Receipt Date: 20170217
  Transmission Date: 20170428
  Serious: Yes (Other)
  Sender: FDA-Public Use
  Company Number: DE-PFIZER INC-2017064730

PATIENT
  Age: 40 Year
  Sex: Male
  Weight: 82 kg

DRUGS (5)
  1. MEVINACOR [Suspect]
     Active Substance: LOVASTATIN
     Indication: HYPERCHOLESTEROLAEMIA
     Dosage: 40 MG, UNK
     Dates: start: 1996
  2. CHOLESTAGEL [Suspect]
     Active Substance: COLESEVELAM HYDROCHLORIDE
     Indication: STENT PLACEMENT
     Dosage: UNK
     Dates: start: 2015
  3. GEVILON [Suspect]
     Active Substance: GEMFIBROZIL
     Dosage: UNK
     Dates: start: 1997
  4. ZOCOR [Suspect]
     Active Substance: SIMVASTATIN
     Indication: HYPERCHOLESTEROLAEMIA
     Dosage: 20 MG, UNK
     Dates: start: 1997
  5. EZETROL [Suspect]
     Active Substance: EZETIMIBE
     Indication: STENT PLACEMENT
     Dosage: UNK
     Dates: start: 2016

REACTIONS (3)
  - Suicidal ideation [Recovering/Resolving]
  - Depression [Recovering/Resolving]
  - Blood creatine phosphokinase increased [Recovering/Resolving]

NARRATIVE: CASE EVENT DATE: 1996
